FAERS Safety Report 6778955-X (Version None)
Quarter: 2010Q2

REPORT INFORMATION
  Report Type: 
  Country: None (occurrence: None)
  Receive Date: 20100618
  Receipt Date: 20100607
  Transmission Date: 20101027
  Serious: Yes (Hospitalization)
  Sender: FDA-Public Use
  Company Number: FR-KINGPHARMUSA00001-K201000702

PATIENT
  Age: 88 Year
  Sex: Female

DRUGS (12)
  1. ALTACE [Suspect]
     Dosage: 1.25 MG, QD
     Route: 048
     Dates: end: 20090114
  2. ALTACE [Suspect]
     Dosage: DOSAGE INCREASED, UNK
     Dates: start: 20090115
  3. ALTACE [Suspect]
     Dosage: DOSAGE DECREASED
     Dates: start: 20090101
  4. LASIX [Suspect]
     Dosage: 40 MG, QAM
  5. LASIX [Suspect]
     Dosage: DOSAGE INCREASED, UNK
     Dates: start: 20090115
  6. PREVISCAN [Concomitant]
     Dosage: 5 MG (1/4 OF 20 MG), UNK
     Route: 048
  7. CARDENSIEL [Concomitant]
     Dosage: 2.5 MG, QD
  8. KALEORID [Concomitant]
     Dosage: 1200 (2, 600 MG DOSES)
  9. TAHOR [Concomitant]
     Dosage: 10 MG, UNK
  10. ZYLORIC [Concomitant]
     Dosage: 300 MG, QD
  11. GLUCOR [Concomitant]
     Dosage: 150 MG (3, 50 MG DOSES)
  12. MOPRAL [Concomitant]
     Dosage: 20 MG, UNK

REACTIONS (6)
  - APLASTIC ANAEMIA [None]
  - BRAIN NATRIURETIC PEPTIDE INCREASED [None]
  - CHEST PAIN [None]
  - DYSPNOEA EXERTIONAL [None]
  - HYPERKALAEMIA [None]
  - RENAL FAILURE ACUTE [None]
